FAERS Safety Report 8488031-6 (Version None)
Quarter: 2012Q2

REPORT INFORMATION
  Report Type: 
  Country: None (occurrence: None)
  Receive Date: 20120622
  Receipt Date: 20120613
  Transmission Date: 20120825
  Serious: Yes (Death, Life-Threatening, Hospitalization)
  Sender: FDA-Public Use
  Company Number: WSDF_00612

PATIENT
  Sex: Male
  Weight: 100.2449 kg

DRUGS (6)
  1. WINRHO SDF [Suspect]
     Indication: IDIOPATHIC THROMBOCYTOPENIC PURPURA
     Dosage: SEE IMAGE
     Route: 042
     Dates: start: 20060922, end: 20060922
  2. WINRHO SDF [Suspect]
     Indication: IDIOPATHIC THROMBOCYTOPENIC PURPURA
     Dosage: SEE IMAGE
     Route: 042
     Dates: start: 20060922, end: 20060922
  3. WINRHO SDF [Suspect]
  4. FLOMAX [Concomitant]
  5. ANTIHYPERTENSIVES [Concomitant]
  6. GLUCOPHAGE [Concomitant]

REACTIONS (24)
  - VOMITING [None]
  - HEPATOSPLENOMEGALY [None]
  - THYROIDITIS CHRONIC [None]
  - CONVULSION [None]
  - NAUSEA [None]
  - HAEMOLYSIS [None]
  - FATIGUE [None]
  - ABDOMINAL PAIN [None]
  - DISSEMINATED INTRAVASCULAR COAGULATION [None]
  - MYOPATHY [None]
  - BENIGN PROSTATIC HYPERPLASIA [None]
  - OVERDOSE [None]
  - ARTERIOSCLEROSIS CORONARY ARTERY [None]
  - HEPATOMEGALY [None]
  - SOMNOLENCE [None]
  - CARDIOMEGALY [None]
  - VENTRICULAR HYPERTROPHY [None]
  - ARRHYTHMIA [None]
  - POOR PERIPHERAL CIRCULATION [None]
  - BACK PAIN [None]
  - DYSPNOEA [None]
  - CHEST PAIN [None]
  - MYOCARDIAL INFARCTION [None]
  - ACTIVATED PARTIAL THROMBOPLASTIN TIME PROLONGED [None]
